FAERS Safety Report 6424543-4 (Version None)
Quarter: 2009Q4

REPORT INFORMATION
  Report Type: 
  Country: None (occurrence: None)
  Receive Date: 20091029
  Receipt Date: 20091020
  Transmission Date: 20100525
  Serious: Yes (Death)
  Sender: FDA-Public Use
  Company Number: 2009JP006388

PATIENT
  Age: 32 Year
  Sex: Male

DRUGS (8)
  1. PROGRAF [Suspect]
     Indication: STEM CELL TRANSPLANT
  2. DAUNORUBICIN HCL [Concomitant]
  3. CYTARABINE [Concomitant]
  4. FLUDARABINE PHOSPHATE [Concomitant]
  5. BUSULFAN (BUSULFAN) INJECTION [Concomitant]
  6. ANTI-THYMOCYTE GLOBULIN NOS [Concomitant]
  7. METHOTREXATE [Concomitant]
  8. METHYLPREDNISOLONE [Concomitant]

REACTIONS (8)
  - ACUTE MYELOID LEUKAEMIA [None]
  - BONE MARROW FAILURE [None]
  - DISEASE RECURRENCE [None]
  - HEPATOSPLENOMEGALY [None]
  - INTRA-ABDOMINAL HAEMORRHAGE [None]
  - MYELODYSPLASTIC SYNDROME [None]
  - REFRACTORY ANAEMIA WITH AN EXCESS OF BLASTS [None]
  - TRANSPLANT REJECTION [None]
